FAERS Safety Report 7659134-0 (Version None)
Quarter: 2011Q3

REPORT INFORMATION
  Report Type: 
  Country: None (occurrence: None)
  Receive Date: 20110805
  Receipt Date: 20110801
  Transmission Date: 20111222
  Serious: Yes (Congenital Anomaly)
  Sender: FDA-Public Use
  Company Number: US-VIIV HEALTHCARE LIMITED-A0937090A

PATIENT
  Sex: Male

DRUGS (6)
  1. EPZICOM [Suspect]
     Indication: HIV INFECTION
     Dosage: 1TAB PER DAY
     Route: 064
     Dates: start: 20090101, end: 20110201
  2. LOPINAVIR/RITONAVIR [Suspect]
     Indication: HIV INFECTION
     Dosage: 4TAB PER DAY
     Route: 064
     Dates: start: 20090101
  3. TRUVADA [Suspect]
     Indication: HIV INFECTION
     Dosage: 1TAB PER DAY
     Route: 064
     Dates: start: 20110201
  4. METRONIDAZOLE [Concomitant]
  5. ZIDOVUDINE [Suspect]
     Indication: ANTIVIRAL PROPHYLAXIS
     Route: 064
     Dates: start: 20110701, end: 20110701
  6. FOLIC ACID [Concomitant]

REACTIONS (3)
  - CONGENITAL CYSTIC KIDNEY DISEASE [None]
  - PREMATURE BABY [None]
  - MATERNAL EXPOSURE DURING PREGNANCY [None]
